FAERS Safety Report 7639259-6 (Version None)
Quarter: 2011Q3

REPORT INFORMATION
  Report Type: 
  Country: None (occurrence: None)
  Receive Date: 20110727
  Receipt Date: 20110721
  Transmission Date: 20111222
  Serious: Yes (Death)
  Sender: FDA-Public Use
  Company Number: JP-MERCK-1107USA02827

PATIENT

DRUGS (1)
  1. COZAAR [Suspect]
     Dosage: DAILY DOSAGE UNKNOWN
     Route: 048

REACTIONS (2)
  - RESPIRATORY TRACT OEDEMA [None]
  - ASPHYXIA [None]
